FAERS Safety Report 18289774 (Version 1)
Quarter: 2020Q3

REPORT INFORMATION
  Report Type: Spontaneous
  Country: US (occurrence: US)
  Receive Date: 20200921
  Receipt Date: 20200921
  Transmission Date: 20201103
  Serious: No
  Sender: FDA-Public Use
  Company Number: US-BRAINTREE LABORATORIES-200178

PATIENT
  Age: 64 Year
  Sex: Female

DRUGS (1)
  1. SUPREP BOWEL PREP [Suspect]
     Active Substance: MAGNESIUM SULFATE\POTASSIUM SULFATE\SODIUM SULFATE
     Indication: COLONOSCOPY
     Dosage: 2 X 6 OZ. BOTTLE
     Route: 048
     Dates: start: 20200604, end: 20200605

REACTIONS (6)
  - Oxygen saturation decreased [None]
  - Headache [None]
  - Dyspnoea [None]
  - Throat tightness [None]
  - Blood glucose increased [None]
  - Heart rate increased [None]

NARRATIVE: CASE EVENT DATE: 20200604
